FAERS Safety Report 12382648 (Version 1)
Quarter: 2016Q2

REPORT INFORMATION
  Report Type: Report from Study
  Country: US (occurrence: US)
  Receive Date: 20160518
  Receipt Date: 20160518
  Transmission Date: 20160815
  Serious: No
  Sender: FDA-Public Use
  Company Number: US-MALLINCKRODT-T201601431

PATIENT
  Sex: Female

DRUGS (3)
  1. LASIX [Concomitant]
     Active Substance: FUROSEMIDE
     Dosage: PRN
     Route: 058
     Dates: start: 20160404
  2. REPOSITORY CORTICOTROPIN INJECTION [Suspect]
     Active Substance: CORTICOTROPIN
     Indication: UVEITIS
     Dosage: 80 UNITS TWICE A WEEK
     Route: 058
     Dates: start: 20160404
  3. POTASSIUM [Concomitant]
     Active Substance: POTASSIUM
     Dosage: PRN

REACTIONS (1)
  - Peripheral swelling [Not Recovered/Not Resolved]
